FAERS Safety Report 7030985-9 (Version None)
Quarter: 2010Q4

REPORT INFORMATION
  Report Type: 
  Country: None (occurrence: None)
  Receive Date: 20101006
  Receipt Date: 20100326
  Transmission Date: 20110411
  Serious: No
  Sender: FDA-Public Use
  Company Number: US-BRISTOL-MYERS SQUIBB COMPANY-15020209

PATIENT
  Age: 14 Year
  Sex: Male
  Weight: 66 kg

DRUGS (2)
  1. KENALOG-40 [Suspect]
     Indication: MUSCLE SPASMS
     Route: 030
     Dates: start: 20090806
  2. ZYRTEC [Concomitant]

REACTIONS (1)
  - INJECTION SITE ATROPHY [None]
